FAERS Safety Report 6644878-X (Version None)
Quarter: 2010Q1

REPORT INFORMATION
  Report Type: 
  Country: None (occurrence: None)
  Receive Date: 20100322
  Receipt Date: 20100315
  Transmission Date: 20100710
  Serious: Yes (Death, Other)
  Sender: FDA-Public Use
  Company Number: CH-CELGENEUS-151-50794-10010622

PATIENT
  Age: 77 Year
  Sex: Female

DRUGS (2)
  1. VIDAZA [Suspect]
     Route: 058
     Dates: start: 20091012
  2. TIENAM [Concomitant]
     Indication: PROPHYLAXIS
     Route: 065
     Dates: start: 20091224, end: 20100104

REACTIONS (2)
  - AGRANULOCYTOSIS [None]
  - PNEUMONIA FUNGAL [None]
